FAERS Safety Report 19640059 (Version 1)
Quarter: 2021Q3

REPORT INFORMATION
  Report Type: Spontaneous
  Country: GB (occurrence: GB)
  Receive Date: 20210730
  Receipt Date: 20210730
  Transmission Date: 20211014
  Serious: Yes (Other)
  Sender: FDA-Public Use
  Company Number: GB-MYLANLABS-2021M1046448

PATIENT
  Age: 63 Year
  Sex: Female
  Weight: 61.68 kg

DRUGS (3)
  1. DOXYCYCLINE. [Suspect]
     Active Substance: DOXYCYCLINE
     Indication: ARTHROPOD BITE
     Dosage: 100 MILLIGRAM
     Route: 048
     Dates: start: 20210615, end: 20210705
  2. DOXYCYCLINE                        /00055702/ [Suspect]
     Active Substance: DOXYCYCLINE
     Indication: ARTHROPOD BITE
  3. DOXYCYCLINE                        /00055702/ [Suspect]
     Active Substance: DOXYCYCLINE
     Indication: ILL-DEFINED DISORDER
     Dosage: 100 MILLIGRAM
     Route: 048
     Dates: start: 20210615, end: 20210705

REACTIONS (5)
  - Chills [Recovering/Resolving]
  - Photosensitivity reaction [Recovering/Resolving]
  - Sunburn [Recovering/Resolving]
  - Feeling hot [Recovering/Resolving]
  - Body temperature fluctuation [Recovering/Resolving]

NARRATIVE: CASE EVENT DATE: 20210619
